FAERS Safety Report 7931430 (Version 2)
Quarter: 2013Q1

REPORT INFORMATION
  Report Type: Spontaneous
  Country: GB (occurrence: None)
  Receive Date: 20110414
  Receipt Date: 20121113
  Transmission Date: 20140127
  Serious: Yes (Life-Threatening, Hospitalization)
  Sender: FDA-Public Use
  Company Number: 2011AP000615

PATIENT
  Age: 53 Year
  Sex: Male

DRUGS (4)
  1. LEFLUNOMIDE [Suspect]
     Indication: RHEUMATOID ARTHRITIS
     Dosage: 20 MG, PO, QD
     Route: 048
     Dates: start: 20110112, end: 20110205
  2. DICLOFENAC (DICLOFENAC) [Concomitant]
  3. METHOTREXATE [Concomitant]
  4. OMEPRAZOLE [Concomitant]

REACTIONS (3)
  - Acute hepatic failure [None]
  - Renal failure acute [None]
  - Sepsis [None]
